FAERS Safety Report 14265349 (Version 2)
Quarter: 2018Q2

REPORT INFORMATION
  Report Type: Spontaneous
  Country: CZ (occurrence: CZ)
  Receive Date: 20171208
  Receipt Date: 20180614
  Transmission Date: 20180711
  Serious: Yes (Other)
  Sender: FDA-Public Use
  Company Number: CZ-IMPAX LABORATORIES, INC-2017-IPXL-03553

PATIENT
  Age: 35 Year
  Sex: Male

DRUGS (6)
  1. PROPRANOLOL HYDROCHLORIDE IR [Suspect]
     Active Substance: PROPRANOLOL HYDROCHLORIDE
     Indication: PRODUCT USE IN UNAPPROVED INDICATION
  2. ZOMETA [Concomitant]
     Active Substance: ZOLEDRONIC ACID
     Indication: OSTEOLYSIS
     Dosage: 4 MG, 28-WEEK INTERVALS
     Route: 042
     Dates: start: 20050623, end: 2009
  3. CYCLOPHOSPHAMIDE. [Suspect]
     Active Substance: CYCLOPHOSPHAMIDE
     Indication: HAEMANGIOMA
     Dosage: UNK
     Route: 065
     Dates: start: 2012
  4. PROPRANOLOL HYDROCHLORIDE IR [Suspect]
     Active Substance: PROPRANOLOL HYDROCHLORIDE
     Indication: HAEMANGIOMA
     Dosage: UNK
     Route: 065
     Dates: start: 2012, end: 2012
  5. SANDOSTATIN [Suspect]
     Active Substance: OCTREOTIDE ACETATE
     Indication: HAEMANGIOMA
     Dosage: 0.1 MG, 2 /DAY
     Route: 065
     Dates: start: 2012
  6. ZOMETA [Concomitant]
     Active Substance: ZOLEDRONIC ACID
     Dosage: 4 MG,  ONCE IN 2 MONTHS
     Route: 042
     Dates: start: 2009

REACTIONS (5)
  - Disease progression [Recovering/Resolving]
  - Hypotension [Unknown]
  - Impaired quality of life [Unknown]
  - Drug ineffective for unapproved indication [Unknown]
  - Cachexia [Unknown]

NARRATIVE: CASE EVENT DATE: 2012
